FAERS Safety Report 8108120-5 (Version None)
Quarter: 2011Q4

REPORT INFORMATION
  Report Type: 
  Country: None (occurrence: None)
  Receive Date: 20111227
  Receipt Date: 20111115
  Transmission Date: 20120403
  Serious: Yes (Other)
  Sender: FDA-Public Use
  Company Number: PHEH2011US06072

PATIENT
  Sex: Female

DRUGS (2)
  1. NOVA (METAMIZOLE SODIUM) [Concomitant]
  2. GILENYA [Suspect]
     Dosage: 0.5 MG, QD, ORAL
     Route: 048
     Dates: start: 20110920

REACTIONS (5)
  - GENITAL HERPES [None]
  - MULTIPLE SCLEROSIS RELAPSE [None]
  - EYE PAIN [None]
  - BALANCE DISORDER [None]
  - HEADACHE [None]
